FAERS Safety Report 5040583-4 (Version None)
Quarter: 2006Q2

REPORT INFORMATION
  Report Type: 
  Country: None (occurrence: None)
  Receive Date: 20060627
  Receipt Date: 20060627
  Transmission Date: 20061013
  Serious: No
  Sender: FDA-Public Use
  Company Number: None

PATIENT
  Sex: Male
  Weight: 76.6579 kg

DRUGS (7)
  1. TENOFOVIR 300 MG [Suspect]
     Indication: ACQUIRED IMMUNODEFICIENCY SYNDROME
     Dosage: 300 QD PO
     Route: 048
     Dates: start: 20010427, end: 20060118
  2. TENOFOVIR 300 MG [Suspect]
     Indication: HIV INFECTION
     Dosage: 300 QD PO
     Route: 048
     Dates: start: 20010427, end: 20060118
  3. NABUMETONE [Suspect]
     Indication: PAIN
     Dosage: 1000 MG BID PO
     Route: 048
     Dates: start: 20010504, end: 20060118
  4. EPZICOM [Concomitant]
  5. FOSAMPRENAVIR [Concomitant]
  6. LORATADINE [Concomitant]
  7. FLUNISOLIDE [Concomitant]

REACTIONS (3)
  - BILE DUCT STONE [None]
  - HAEMODIALYSIS [None]
  - RENAL FAILURE ACUTE [None]
